FAERS Safety Report 7113648-0 (Version None)
Quarter: 2010Q4

REPORT INFORMATION
  Report Type: 
  Country: None (occurrence: None)
  Receive Date: 20101119
  Receipt Date: 20101105
  Transmission Date: 20110411
  Serious: Yes (Hospitalization)
  Sender: FDA-Public Use
  Company Number: IR-WATSON-2010-14800

PATIENT
  Age: 40 Year
  Sex: Female

DRUGS (1)
  1. TOPIRAMATE [Suspect]
     Indication: MIGRAINE
     Dosage: 25 MG, Q8H

REACTIONS (4)
  - ANGLE CLOSURE GLAUCOMA [None]
  - HYPOPYON [None]
  - IRIDOCYCLITIS [None]
  - IRIS ADHESIONS [None]
